FAERS Safety Report 13408364 (Version 3)
Quarter: 2019Q3

REPORT INFORMATION
  Report Type: Spontaneous
  Country: US (occurrence: US)
  Receive Date: 20170406
  Receipt Date: 20190906
  Transmission Date: 20191004
  Serious: No
  Sender: FDA-Public Use
  Company Number: US-JNJFOC-20170206817

PATIENT
  Age: 10 Year
  Sex: Male

DRUGS (5)
  1. RISPERDAL [Suspect]
     Active Substance: RISPERIDONE
     Indication: AFFECTIVE DISORDER
  2. RISPERIDONE. [Suspect]
     Active Substance: RISPERIDONE
     Indication: AFFECTIVE DISORDER
     Dosage: VARYING DOSES OF 1 MG, 2 MG, 4 MG
     Route: 048
     Dates: start: 20090320, end: 20120328
  3. RISPERIDONE. [Suspect]
     Active Substance: RISPERIDONE
     Indication: PRODUCT USED FOR UNKNOWN INDICATION
     Route: 048
  4. RISPERDAL [Suspect]
     Active Substance: RISPERIDONE
     Indication: ATTENTION DEFICIT/HYPERACTIVITY DISORDER
     Dosage: VARYING DOSES OF 0.5 MG,1 MG AND 2 MG
     Route: 048
     Dates: start: 20081003, end: 20120504
  5. RISPERIDONE. [Suspect]
     Active Substance: RISPERIDONE
     Indication: ATTENTION DEFICIT/HYPERACTIVITY DISORDER

REACTIONS (5)
  - Gynaecomastia [Unknown]
  - Product use in unapproved indication [Unknown]
  - Weight increased [Unknown]
  - Emotional distress [Unknown]
  - Off label use [Unknown]

NARRATIVE: CASE EVENT DATE: 20081003
